FAERS Safety Report 10727935 (Version 1)
Quarter: 2015Q1

REPORT INFORMATION
  Report Type: Spontaneous
  Country: SE (occurrence: SE)
  Receive Date: 20150121
  Receipt Date: 20150121
  Transmission Date: 20150721
  Serious: Yes (Other)
  Sender: FDA-Public Use
  Company Number: ALCN2015SE000691

PATIENT
  Age: 13 Year
  Sex: Male

DRUGS (3)
  1. ATROPINE SULFATE. [Suspect]
     Active Substance: ATROPINE SULFATE
     Indication: CYCLOPLEGIA
     Dosage: 1 GTT, 6QD
     Route: 047
     Dates: start: 20140523
  2. MAXIDEX [Suspect]
     Active Substance: DEXAMETHASONE
     Indication: EYE INFLAMMATION
     Dosage: 1 GTT, AT NIGHT
     Route: 047
     Dates: start: 20140523
  3. ATROPINE SULFATE. [Suspect]
     Active Substance: ATROPINE SULFATE
     Indication: MYDRIASIS

REACTIONS (3)
  - Incorrect dose administered [Recovered/Resolved]
  - Product label confusion [Recovered/Resolved]
  - Drug effect delayed [Recovered/Resolved]

NARRATIVE: CASE EVENT DATE: 20140523
